FAERS Safety Report 7657975-7 (Version None)
Quarter: 2011Q3

REPORT INFORMATION
  Report Type: 
  Country: None (occurrence: None)
  Receive Date: 20110805
  Receipt Date: 20110802
  Transmission Date: 20111222
  Serious: No
  Sender: FDA-Public Use
  Company Number: US-BIOGENIDEC-2011BI029145

PATIENT
  Age: 39 Year
  Sex: Female

DRUGS (3)
  1. AVONEX [Suspect]
     Indication: MULTIPLE SCLEROSIS
     Route: 030
     Dates: start: 20090330, end: 20110712
  2. AVONEX [Suspect]
     Route: 030
     Dates: start: 19980301, end: 20070925
  3. AVONEX [Suspect]
     Route: 030
     Dates: start: 20071010

REACTIONS (1)
  - CENTRAL NERVOUS SYSTEM LESION [None]
